FAERS Safety Report 20166217 (Version 2)
Quarter: 2021Q4

REPORT INFORMATION
  Report Type: Spontaneous
  Country: JP (occurrence: None)
  Receive Date: 20211209
  Receipt Date: 20211213
  Transmission Date: 20220304
  Serious: Yes (Other)
  Sender: FDA-Public Use
  Company Number: JP-FRESENIUS KABI-FK202113768

PATIENT
  Age: 69 Year
  Sex: Male

DRUGS (9)
  1. ROCURONIUM [Suspect]
     Active Substance: ROCURONIUM BROMIDE
     Indication: Muscle relaxant therapy
     Dosage: 50 MG (DURING ENDOTRACHEAL INTUBATION)
     Route: 065
  2. REMIFENTANIL [Concomitant]
     Active Substance: REMIFENTANIL
     Indication: Product used for unknown indication
     Dosage: [1) 0.3 MCG/KG/MIN, 2) 0.10 TO 0.20 MCG/KG/MIN]
     Route: 065
  3. PROPOFOL [Concomitant]
     Active Substance: PROPOFOL
     Indication: Product used for unknown indication
     Route: 065
  4. OXYGEN [Concomitant]
     Active Substance: OXYGEN
     Indication: Product used for unknown indication
     Route: 065
  5. DESFLURANE [Concomitant]
     Active Substance: DESFLURANE
     Indication: Product used for unknown indication
     Route: 065
  6. DESFLURANE [Concomitant]
     Active Substance: DESFLURANE
     Indication: Product used for unknown indication
     Route: 065
  7. SUGAMMADEX [Concomitant]
     Active Substance: SUGAMMADEX
     Indication: Product used for unknown indication
     Route: 065
  8. FENTANYL [Concomitant]
     Active Substance: FENTANYL
     Indication: Product used for unknown indication
     Route: 065
  9. ACETAMINOPHEN [Concomitant]
     Active Substance: ACETAMINOPHEN
     Indication: Product used for unknown indication
     Route: 065

REACTIONS (1)
  - Respiratory arrest [Recovered/Resolved]
